FAERS Safety Report 9101486 (Version 1)
Quarter: 2013Q1

REPORT INFORMATION
  Report Type: Report from Study
  Country: US (occurrence: US)
  Receive Date: 20130218
  Receipt Date: 20130218
  Transmission Date: 20140127
  Serious: Yes (Hospitalization)
  Sender: FDA-Public Use
  Company Number: US-ROCHE-1047851

PATIENT
  Age: 54 Year
  Sex: Female
  Weight: 72.64 kg

DRUGS (6)
  1. CAPECITABINE [Suspect]
     Indication: BREAST CANCER METASTATIC
     Route: 048
     Dates: start: 20111015
  2. CAPECITABINE [Suspect]
     Route: 048
     Dates: start: 20111105
  3. TRASTUZUMAB [Suspect]
     Indication: BREAST CANCER METASTATIC
     Route: 042
     Dates: start: 20111015
  4. LISINOPRIL [Concomitant]
     Route: 048
  5. COUMADIN [Concomitant]
     Route: 048
     Dates: start: 20111031, end: 20111105
  6. ZOMETA [Concomitant]
     Route: 042
     Dates: start: 20111015

REACTIONS (11)
  - Upper limb fracture [Recovered/Resolved]
  - Rash [Not Recovered/Not Resolved]
  - Pruritus [Not Recovered/Not Resolved]
  - Acne [Not Recovered/Not Resolved]
  - Rash generalised [Recovering/Resolving]
  - Dry skin [Recovering/Resolving]
  - Onychomadesis [Recovering/Resolving]
  - Decreased appetite [Not Recovered/Not Resolved]
  - Abdominal discomfort [Not Recovered/Not Resolved]
  - Back pain [Not Recovered/Not Resolved]
  - Pain in extremity [Not Recovered/Not Resolved]
